FAERS Safety Report 5532191-3 (Version None)
Quarter: 2007Q4

REPORT INFORMATION
  Report Type: 
  Country: None (occurrence: None)
  Receive Date: 20071203
  Receipt Date: 20071119
  Transmission Date: 20080405
  Serious: Yes (Death, Life-Threatening)
  Sender: FDA-Public Use
  Company Number: JP-AVENTIS-200712962JP

PATIENT
  Age: 46 Year
  Sex: Female
  Weight: 46 kg

DRUGS (18)
  1. TAXOTERE [Suspect]
     Route: 041
     Dates: start: 20071005, end: 20071005
  2. HERCEPTIN [Suspect]
     Route: 041
     Dates: start: 20070824, end: 20070824
  3. HERCEPTIN [Suspect]
     Route: 041
     Dates: start: 20070831, end: 20070928
  4. HERCEPTIN [Suspect]
     Route: 041
     Dates: start: 20071005, end: 20071019
  5. KYTRIL                             /01178101/ [Concomitant]
     Indication: PROPHYLAXIS OF NAUSEA AND VOMITING
     Route: 041
     Dates: start: 20071005, end: 20071005
  6. DECADRON [Concomitant]
     Indication: PROPHYLAXIS OF NAUSEA AND VOMITING
     Route: 041
     Dates: start: 20071005, end: 20071005
  7. CHLOR TRIMETON DECONGESTANT [Concomitant]
     Indication: PROPHYLAXIS OF NAUSEA AND VOMITING
     Route: 041
     Dates: start: 20071005, end: 20071005
  8. GASTER [Concomitant]
     Indication: PROPHYLAXIS OF NAUSEA AND VOMITING
     Route: 041
     Dates: start: 20071005, end: 20071005
  9. ALOSENN                            /00476901/ [Concomitant]
     Indication: CONSTIPATION
     Route: 048
     Dates: start: 20070824, end: 20071004
  10. MAGMITT [Concomitant]
     Indication: CONSTIPATION
     Route: 048
     Dates: start: 20071004, end: 20071017
  11. P-EBM [Concomitant]
     Route: 048
     Dates: start: 20070810, end: 20070921
  12. CODEINE SUL TAB [Concomitant]
     Route: 048
     Dates: start: 20070829, end: 20071004
  13. MINOCYCLINE HCL [Concomitant]
     Indication: PLEURAL EFFUSION
     Route: 034
     Dates: start: 20070830, end: 20070830
  14. PROCAINE HYDROCHLORIDE INJ [Concomitant]
     Indication: PLEURAL EFFUSION
     Route: 034
     Dates: start: 20070830, end: 20070830
  15. LASIX [Concomitant]
     Route: 048
     Dates: start: 20070830, end: 20070921
  16. MUCOSTA [Concomitant]
     Indication: GASTRITIS PROPHYLAXIS
     Route: 048
     Dates: start: 20070810, end: 20070830
  17. LOXONIN                            /00890701/ [Concomitant]
     Indication: PAIN
     Route: 048
     Dates: start: 20070810, end: 20071015
  18. RHYTHMY [Concomitant]
     Route: 048
     Dates: start: 20071004, end: 20071022

REACTIONS (4)
  - ALTERED STATE OF CONSCIOUSNESS [None]
  - BREAST CANCER [None]
  - NEUTROPHIL COUNT DECREASED [None]
  - WHITE BLOOD CELL COUNT DECREASED [None]
